FAERS Safety Report 26098463 (Version 2)
Quarter: 2025Q4

REPORT INFORMATION
  Report Type: Spontaneous
  Country: US (occurrence: US)
  Receive Date: 20251127
  Receipt Date: 20251221
  Transmission Date: 20260118
  Serious: No
  Sender: MERCK SHARP & DOHME LLC
  Company Number: US-009507513-2346345

PATIENT
  Sex: Female
  Weight: 94.8 kg

DRUGS (14)
  1. WINREVAIR [Suspect]
     Active Substance: SOTATERCEPT-CSRK
  2. WINREVAIR [Suspect]
     Active Substance: SOTATERCEPT-CSRK
  3. WINREVAIR [Suspect]
     Active Substance: SOTATERCEPT-CSRK
  4. WINREVAIR [Suspect]
     Active Substance: SOTATERCEPT-CSRK
  5. TYVASO DPI [Suspect]
     Active Substance: TREPROSTINIL
     Indication: Pulmonary arterial hypertension
     Route: 055
     Dates: start: 20241220
  6. AMBRISENTAN [Concomitant]
     Active Substance: AMBRISENTAN
  7. POTASSIUM CHLORIDE [Concomitant]
     Active Substance: POTASSIUM CHLORIDE
  8. TADALAFIL [Concomitant]
     Active Substance: TADALAFIL
  9. ELIQUIS [Concomitant]
     Active Substance: APIXABAN
  10. LISINOPRIL [Concomitant]
     Active Substance: LISINOPRIL
  11. OXYGEN [Concomitant]
     Active Substance: OXYGEN
  12. FUROSEMIDE [Concomitant]
     Active Substance: FUROSEMIDE
  13. BENZONATATE [Concomitant]
     Active Substance: BENZONATATE
  14. METFORMIN HYDROCHLORIDE [Concomitant]
     Active Substance: METFORMIN HYDROCHLORIDE

REACTIONS (1)
  - Gingival bleeding [Unknown]
